FAERS Safety Report 8115705-9 (Version None)
Quarter: 2012Q1

REPORT INFORMATION
  Report Type: 
  Country: None (occurrence: None)
  Receive Date: 20120113
  Receipt Date: 20120109
  Transmission Date: 20120608
  Serious: Yes (Other)
  Sender: FDA-Public Use
  Company Number: 2011029371

PATIENT
  Age: 24 Month
  Sex: Male
  Weight: 14.9687 kg

DRUGS (13)
  1. DELSYM [Concomitant]
  2. HIZENTRA [Suspect]
  3. NASONEX [Concomitant]
  4. XOPENEX [Concomitant]
  5. XYZAL [Concomitant]
  6. HIZENTRA [Suspect]
     Indication: IMMUNODEFICIENCY COMMON VARIABLE
     Dosage: SEE IMAGE
     Route: 058
     Dates: start: 20100904
  7. HIZENTRA [Suspect]
     Indication: IMMUNODEFICIENCY COMMON VARIABLE
     Dosage: SEE IMAGE
     Route: 058
     Dates: start: 20100904
  8. PULMICORT [Concomitant]
  9. PREVACID [Concomitant]
  10. SINGULAIR [Concomitant]
  11. MUCINEX [Concomitant]
  12. ZYRTEC [Concomitant]
  13. HIZENTRA [Suspect]

REACTIONS (3)
  - PRODUCTIVE COUGH [None]
  - RESPIRATORY TRACT INFECTION [None]
  - SINUSITIS [None]
